FAERS Safety Report 19168623 (Version 6)
Quarter: 2021Q3

REPORT INFORMATION
  Report Type: Report from Study
  Country: CA (occurrence: CA)
  Receive Date: 20210422
  Receipt Date: 20210706
  Transmission Date: 20211014
  Serious: Yes (Life-Threatening, Hospitalization)
  Sender: FDA-Public Use
  Company Number: CA-JNJFOC-20210302497

PATIENT
  Age: 46 Year
  Sex: Female

DRUGS (4)
  1. SOLU?MEDROL [Suspect]
     Active Substance: METHYLPREDNISOLONE SODIUM SUCCINATE
     Indication: VENOUS OCCLUSION
     Route: 065
  2. METHOTREXATE. [Suspect]
     Active Substance: METHOTREXATE
     Indication: COVID-19
     Route: 065
     Dates: start: 20210414
  3. REMICADE [Suspect]
     Active Substance: INFLIXIMAB
     Indication: ANKYLOSING SPONDYLITIS
     Route: 042
     Dates: start: 20141119
  4. VOLTAREN [DICLOFENAC] [Concomitant]
     Active Substance: DICLOFENAC SODIUM
     Indication: SPONDYLITIS
     Route: 065

REACTIONS (14)
  - COVID-19 [Not Recovered/Not Resolved]
  - Skin plaque [Recovered/Resolved]
  - Granuloma [Not Recovered/Not Resolved]
  - Alopecia [Not Recovered/Not Resolved]
  - Venous occlusion [Unknown]
  - Feeling hot [Recovered/Resolved]
  - Seasonal allergy [Unknown]
  - Infusion related reaction [Recovered/Resolved]
  - Condition aggravated [Unknown]
  - Hyperaesthesia teeth [Not Recovered/Not Resolved]
  - Tachycardia [Recovered/Resolved]
  - Erythema [Recovered/Resolved]
  - Hypoaesthesia [Not Recovered/Not Resolved]
  - Pruritus [Recovered/Resolved]

NARRATIVE: CASE EVENT DATE: 20210227
